FAERS Safety Report 4279993-1 (Version None)
Quarter: 2004Q1

REPORT INFORMATION
  Report Type: 
  Country: None (occurrence: None)
  Receive Date: 20040121
  Receipt Date: 20040106
  Transmission Date: 20041129
  Serious: Yes (Death, Hospitalization)
  Sender: FDA-Public Use
  Company Number: F01200400013

PATIENT
  Age: 75 Year
  Sex: Male

DRUGS (9)
  1. OXALIPLATIN SOLUTION 130MG/M2 [Suspect]
     Indication: COLORECTAL CANCER METASTATIC
     Dosage: 240 MG Q3W
     Route: 042
     Dates: start: 20031216, end: 20031216
  2. CAPECITABINE TABLET 1000 MG/M2 [Suspect]
     Dosage: 1800 MG (1000 MG/M2 TWICE A DAY FOR 2 WEEKS WITH ONE WEEK REST)
     Route: 048
     Dates: start: 20031216, end: 20031216
  3. BENICAR (OLMESARTAN MEDOXOMIL) [Concomitant]
  4. LOPRESSOR [Concomitant]
  5. LOTENSIN [Concomitant]
  6. HYDROCHLOROTHIAZIDE [Concomitant]
  7. ZOCOR [Concomitant]
  8. COMPAZINE [Concomitant]
  9. IMODIUM [Concomitant]

REACTIONS (10)
  - ACUTE MYOCARDIAL INFARCTION [None]
  - BLOOD POTASSIUM DECREASED [None]
  - DEHYDRATION [None]
  - DIARRHOEA [None]
  - ELECTROCARDIOGRAM QRS COMPLEX PROLONGED [None]
  - HAEMOGLOBIN DECREASED [None]
  - HYPOTENSION [None]
  - MEDICATION ERROR [None]
  - RENAL FAILURE ACUTE [None]
  - VENTRICULAR TACHYCARDIA [None]
